FAERS Safety Report 18901474 (Version 2)
Quarter: 2021Q1

REPORT INFORMATION
  Report Type: Spontaneous
  Country: US (occurrence: US)
  Receive Date: 20210217
  Receipt Date: 20210303
  Transmission Date: 20210420
  Serious: No
  Sender: FDA-Public Use
  Company Number: US-BEH-2021128469

PATIENT
  Age: 65 Year
  Sex: Female

DRUGS (2)
  1. HIZENTRA [Suspect]
     Active Substance: HUMAN IMMUNOGLOBULIN G
     Indication: SJOGREN^S SYNDROME
  2. HIZENTRA [Suspect]
     Active Substance: HUMAN IMMUNOGLOBULIN G
     Indication: MYOSITIS
     Dosage: 12 GRAM, QW
     Route: 058
     Dates: start: 20201201

REACTIONS (5)
  - Abdominal distension [Unknown]
  - Dyspnoea [Unknown]
  - Off label use [Unknown]
  - Swelling [Unknown]
  - No adverse event [Unknown]
